FAERS Safety Report 24713696 (Version 1)
Quarter: 2024Q4

REPORT INFORMATION
  Report Type: Spontaneous
  Country: GB (occurrence: GB)
  Receive Date: 20241209
  Receipt Date: 20241209
  Transmission Date: 20250114
  Serious: Yes (Other)
  Sender: FERRING
  Company Number: None

PATIENT

DRUGS (2)
  1. DDAVP [Suspect]
     Active Substance: DESMOPRESSIN ACETATE
     Indication: Enuresis
     Dosage: 200 UG, 1 TIME DAILY
     Route: 065
  2. DESMOPRESSIN [Suspect]
     Active Substance: DESMOPRESSIN
     Indication: Enuresis
     Dosage: 120 UG, 1 TIME DAILY
     Route: 060

REACTIONS (5)
  - Myalgia [Recovered/Resolved]
  - Asthenia [Recovered/Resolved]
  - Sleep disorder [Unknown]
  - Headache [Recovered/Resolved]
  - Vomiting [Recovered/Resolved]
